FAERS Safety Report 4917475-1 (Version None)
Quarter: 2006Q1

REPORT INFORMATION
  Report Type: 
  Country: None (occurrence: None)
  Receive Date: 20060221
  Receipt Date: 20050325
  Transmission Date: 20060701
  Serious: Yes (Hospitalization)
  Sender: FDA-Public Use
  Company Number: US-MERCK-0503USA04977

PATIENT
  Age: 56 Year
  Sex: Female
  Weight: 52 kg

DRUGS (1)
  1. VIOXX [Suspect]
     Route: 048

REACTIONS (11)
  - ASTHENIA [None]
  - CARPAL TUNNEL SYNDROME [None]
  - CEREBROVASCULAR ACCIDENT [None]
  - DEPRESSION [None]
  - FUNGAL INFECTION [None]
  - HYPERTENSION [None]
  - INSOMNIA [None]
  - PERIODIC LIMB MOVEMENT DISORDER [None]
  - SNORING [None]
  - TRIGGER FINGER [None]
  - URETERITIS [None]
